FAERS Safety Report 7101702-9 (Version None)
Quarter: 2010Q4

REPORT INFORMATION
  Report Type: 
  Country: None (occurrence: None)
  Receive Date: 20101109
  Receipt Date: 20101005
  Transmission Date: 20110411
  Serious: Yes (Other)
  Sender: FDA-Public Use
  Company Number: 2010-2974

PATIENT
  Age: 52 Year
  Sex: Female

DRUGS (2)
  1. DYSPORT [Suspect]
     Indication: PRODUCT USED FOR UNKNOWN INDICATION
     Dosage: 50 UNITS (50 UNITS,SINGLE CYCLE),INTRAMUSCULAR
     Route: 030
     Dates: start: 20100602, end: 20100602
  2. DYSPORT [Suspect]
     Indication: SKIN WRINKLING
     Dosage: 50 UNITS (50 UNITS,SINGLE CYCLE),INTRAMUSCULAR
     Route: 030
     Dates: start: 20100602, end: 20100602

REACTIONS (4)
  - INJECTION SITE INDURATION [None]
  - INJECTION SITE SWELLING [None]
  - OFF LABEL USE [None]
  - POOR QUALITY DRUG ADMINISTERED [None]
